FAERS Safety Report 12231477 (Version 2)
Quarter: 2016Q2

REPORT INFORMATION
  Report Type: Spontaneous
  Country: PT (occurrence: PT)
  Receive Date: 20160401
  Receipt Date: 20160520
  Transmission Date: 20160815
  Serious: Yes (Hospitalization, Other)
  Sender: FDA-Public Use
  Company Number: PT-BAYER-2016-056900

PATIENT
  Age: 38 Year
  Sex: Female

DRUGS (2)
  1. DROSPIRENONE + ETHINYLESTRADIOL [Suspect]
     Active Substance: DROSPIRENONE\ETHINYL ESTRADIOL
     Indication: CONTRACEPTION
     Dosage: UNK
     Route: 048
  2. DROSPIRENONE + ETHINYLESTRADIOL [Suspect]
     Active Substance: DROSPIRENONE\ETHINYL ESTRADIOL
     Indication: CONTRACEPTION
     Dosage: UNK
     Route: 048
     Dates: end: 2013

REACTIONS (10)
  - Menstruation delayed [Recovered/Resolved]
  - Uterine disorder [None]
  - Premature labour [Recovered/Resolved]
  - Uterine leiomyoma [Recovering/Resolving]
  - Caesarean section [None]
  - Retroplacental haematoma [None]
  - Maternal exposure before pregnancy [Recovered/Resolved]
  - Uterine haemorrhage [Recovering/Resolving]
  - Uterine leiomyoma [None]
  - Abdominal pain [None]

NARRATIVE: CASE EVENT DATE: 200912
